FAERS Safety Report 6486471-8 (Version None)
Quarter: 2009Q4

REPORT INFORMATION
  Report Type: 
  Country: None (occurrence: None)
  Receive Date: 20091210
  Receipt Date: 20091130
  Transmission Date: 20100525
  Serious: Yes (Death)
  Sender: FDA-Public Use
  Company Number: JP-BAXTER-2009BH017769

PATIENT
  Sex: Male

DRUGS (2)
  1. FEIBA VH IMMUNO [Suspect]
     Indication: ACQUIRED HAEMOPHILIA
     Route: 042
  2. OTHER CHEMOTHERAPEUTICS [Concomitant]
     Indication: NEOPLASM MALIGNANT

REACTIONS (1)
  - CEREBRAL HAEMORRHAGE [None]
